FAERS Safety Report 13570410 (Version 4)
Quarter: 2018Q2

REPORT INFORMATION
  Report Type: Report from Study
  Country: None (occurrence: US)
  Receive Date: 20170522
  Receipt Date: 20180410
  Transmission Date: 20180711
  Serious: Yes (Other)
  Sender: FDA-Public Use
  Company Number: US-ABBVIE-17K-163-1981681-00

PATIENT
  Sex: Male

DRUGS (1)
  1. HUMIRA [Suspect]
     Active Substance: ADALIMUMAB
     Indication: CROHN^S DISEASE
     Route: 058
     Dates: start: 201602

REACTIONS (17)
  - Duodenitis [Recovered/Resolved]
  - Vomiting [Recovered/Resolved]
  - Gout [Recovering/Resolving]
  - Bronchitis [Unknown]
  - Nausea [Recovered/Resolved]
  - Injection site pain [Recovered/Resolved]
  - Headache [Unknown]
  - Oesophageal obstruction [Recovered/Resolved]
  - Ileostomy [Unknown]
  - Gastrointestinal ulcer [Not Recovered/Not Resolved]
  - Fatigue [Not Recovered/Not Resolved]
  - Gastrointestinal pain [Unknown]
  - Muscle spasms [Not Recovered/Not Resolved]
  - Post procedural complication [Not Recovered/Not Resolved]
  - Asthenia [Unknown]
  - Constipation [Recovered/Resolved]
  - Dehydration [Recovering/Resolving]

NARRATIVE: CASE EVENT DATE: 2016
